FAERS Safety Report 5453221-3 (Version None)
Quarter: 2007Q3

REPORT INFORMATION
  Report Type: 
  Country: None (occurrence: None)
  Receive Date: 20070914
  Receipt Date: 20070904
  Transmission Date: 20080115
  Serious: Yes (Other)
  Sender: FDA-Public Use
  Company Number: FR-PFIZER INC-2007074889

PATIENT
  Age: 50 Year
  Sex: Male

DRUGS (3)
  1. CHAMPIX [Suspect]
     Indication: SMOKING CESSATION THERAPY
     Dosage: DAILY DOSE:.5MG-FREQ:DAILY
  2. STILNOX [Concomitant]
  3. NOCTRAN 10 [Concomitant]

REACTIONS (4)
  - DEPRESSION [None]
  - HAEMORRHAGE [None]
  - HOMICIDAL IDEATION [None]
  - SUICIDAL IDEATION [None]
